FAERS Safety Report 5515806-5 (Version None)
Quarter: 2007Q4

REPORT INFORMATION
  Report Type: 
  Country: None (occurrence: None)
  Receive Date: 20071109
  Receipt Date: 20071027
  Transmission Date: 20080405
  Serious: Yes (Other)
  Sender: FDA-Public Use
  Company Number: RENA-12257

PATIENT
  Age: 55 Year
  Sex: Male

DRUGS (1)
  1. RENAGEL [Suspect]
     Indication: HYPERPHOSPHATAEMIA
     Dosage: 0.8 G TID PO
     Route: 048
     Dates: start: 20060501, end: 20060701

REACTIONS (6)
  - CONDITION AGGRAVATED [None]
  - DRUG INEFFECTIVE [None]
  - HYPERPHOSPHATAEMIA [None]
  - INCORRECT DOSE ADMINISTERED [None]
  - RENAL TRANSPLANT [None]
  - TREATMENT NONCOMPLIANCE [None]
